FAERS Safety Report 8951219 (Version 2)
Quarter: 2012Q4

REPORT INFORMATION
  Report Type: 
  Country: IE (occurrence: IE)
  Receive Date: 20121207
  Receipt Date: 20121221
  Transmission Date: 20130627
  Serious: Yes (Other)
  Sender: FDA-Public Use
  Company Number: IE-NOVOPROD-364833

PATIENT
  Sex: Male

DRUGS (4)
  1. VICTOZA [Suspect]
     Indication: TYPE 2 DIABETES MELLITUS
     Dosage: 1.8 mg, qd
     Route: 065
     Dates: start: 201209, end: 20121120
  2. OLMESARTAN [Concomitant]
     Dosage: 20 mg, qd,
  3. AMLODIPINE [Concomitant]
     Dosage: 5 mg, UNK
  4. GLICLAZIDE [Concomitant]
     Dosage: 20 mg, UNK

REACTIONS (2)
  - Abdominal pain [Recovered/Resolved]
  - Abdominal distension [Recovered/Resolved]
